FAERS Safety Report 6648118-7 (Version None)
Quarter: 2010Q1

REPORT INFORMATION
  Report Type: 
  Country: None (occurrence: None)
  Receive Date: 20100324
  Receipt Date: 20100318
  Transmission Date: 20100710
  Serious: Yes (Hospitalization, Other)
  Sender: FDA-Public Use
  Company Number: US-BRISTOL-MYERS SQUIBB COMPANY-14939094

PATIENT
  Age: 72 Year
  Sex: Female
  Weight: 61 kg

DRUGS (13)
  1. ORENCIA [Suspect]
     Indication: RHEUMATOID ARTHRITIS
     Dosage: DURATION OF THERAPY: 4-5MONTHS. NOV OR DEC-2009 RECHALLENGED ON 1MAR10
     Route: 042
     Dates: start: 20091001
  2. SULFASALAZINE [Suspect]
  3. ASACOL [Concomitant]
  4. NIFEDIAC [Concomitant]
  5. SYNTHROID [Concomitant]
  6. LEVOTHYROXINE SODIUM [Concomitant]
  7. HYDROCODONE [Concomitant]
  8. ACETAMINOPHEN [Concomitant]
  9. GLUCOSAMINE [Concomitant]
  10. CHONDROITIN [Concomitant]
  11. VITAMIN D [Concomitant]
  12. MULTI-VITAMIN [Concomitant]
  13. LYSINE [Concomitant]

REACTIONS (1)
  - PANCREATITIS ACUTE [None]
